FAERS Safety Report 5410981-5 (Version None)
Quarter: 2007Q3

REPORT INFORMATION
  Report Type: 
  Country: None (occurrence: None)
  Receive Date: 20070810
  Receipt Date: 20070712
  Transmission Date: 20080115
  Serious: No
  Sender: FDA-Public Use
  Company Number: A0660807A

PATIENT
  Sex: Female

DRUGS (1)
  1. ALTABAX [Suspect]
     Indication: INFECTION
     Route: 061

REACTIONS (2)
  - BURNING SENSATION [None]
  - HYPERSENSITIVITY [None]
